FAERS Safety Report 6317434-0 (Version None)
Quarter: 2009Q3

REPORT INFORMATION
  Report Type: 
  Country: None (occurrence: None)
  Receive Date: 20090821
  Receipt Date: 20090811
  Transmission Date: 20100115
  Serious: Yes (Death, Hospitalization, Other)
  Sender: FDA-Public Use
  Company Number: US-ELI_LILLY_AND_COMPANY-US200907002411

PATIENT
  Sex: Male
  Weight: 102.4 kg

DRUGS (9)
  1. BYETTA [Suspect]
     Indication: TYPE 2 DIABETES MELLITUS
     Dosage: 5 UG, 2/D
     Route: 058
     Dates: start: 20080801, end: 20080925
  2. BYETTA [Suspect]
     Dosage: 10 UG, 2/D
     Route: 058
     Dates: start: 20080926
  3. GLUCOPHAGE [Concomitant]
     Dosage: 1000 MG, 2/D
  4. LISINOPRIL [Concomitant]
     Indication: HYPERTENSION
     Dosage: 10 MG, DAILY (1/D)
  5. GLIPIZIDE [Concomitant]
     Dosage: 5 MG, 2/D
  6. GLIPIZIDE [Concomitant]
     Dosage: 5 MG, DAILY (1/D)
  7. ASPIRIN [Concomitant]
     Dosage: 81 MG, DAILY (1/D)
  8. LIPITOR [Concomitant]
     Indication: HYPERLIPIDAEMIA
     Dosage: 20 MG, DAILY (1/D)
     Dates: end: 20081012
  9. VERAPAMIL [Concomitant]
     Indication: HYPERTENSION
     Dosage: 240 MG, DAILY (1/D)

REACTIONS (6)
  - ADENOCARCINOMA [None]
  - BILE DUCT CANCER [None]
  - MYOCARDIAL INFARCTION [None]
  - ULCER HAEMORRHAGE [None]
  - WEIGHT DECREASED [None]
  - WOUND HAEMORRHAGE [None]
